FAERS Safety Report 9409514 (Version 1)
Quarter: 2013Q3

REPORT INFORMATION
  Report Type: Spontaneous
  Country: US (occurrence: US)
  Receive Date: 20130719
  Receipt Date: 20130719
  Transmission Date: 20140515
  Serious: Yes (Other)
  Sender: FDA-Public Use
  Company Number: US-PFIZER INC-2013207784

PATIENT
  Age: 46 Year
  Sex: Female
  Weight: 68.48 kg

DRUGS (8)
  1. REVATIO [Suspect]
     Indication: PULMONARY ARTERIAL HYPERTENSION
     Dosage: 100 MG (5 TABLETS OF 20MG), 4X/DAY
     Route: 048
  2. REMODULIN [Suspect]
     Dosage: 99 MG, UNK
     Route: 058
  3. SYNTHROID [Concomitant]
     Indication: THYROID CANCER
     Dosage: 150 UG, 1X/DAY
  4. ALDACTONE [Concomitant]
     Dosage: 200 MG, 2X/DAY
  5. LASIX [Concomitant]
     Dosage: 40 MG, 2X/DAY
  6. TRACLEER [Concomitant]
     Dosage: 125 MG, 2X/DAY
  7. POTASSIUM [Concomitant]
     Dosage: 100 MG, 2X/DAY
  8. SINGULAIR [Concomitant]
     Dosage: 10 MG, 1X/DAY

REACTIONS (3)
  - Subcutaneous abscess [Not Recovered/Not Resolved]
  - Injection site infection [Not Recovered/Not Resolved]
  - Incorrect dose administered [Unknown]
